FAERS Safety Report 21852040 (Version 1)
Quarter: 2023Q1

REPORT INFORMATION
  Report Type: Spontaneous
  Country: CN (occurrence: CN)
  Receive Date: 20230112
  Receipt Date: 20230112
  Transmission Date: 20230417
  Serious: No
  Sender: FDA-Public Use
  Company Number: CN-PADAGIS-2022PAD01264

PATIENT

DRUGS (4)
  1. CLOBETASOL PROPIONATE [Suspect]
     Active Substance: CLOBETASOL PROPIONATE
     Indication: Tinea infection
     Dosage: UNK
     Route: 065
  2. CLOBETASOL PROPIONATE [Suspect]
     Active Substance: CLOBETASOL PROPIONATE
     Indication: Microsporum infection
  3. KETOCONAZOLE [Suspect]
     Active Substance: KETOCONAZOLE
     Indication: Microsporum infection
     Dosage: UNK
     Route: 065
  4. KETOCONAZOLE [Suspect]
     Active Substance: KETOCONAZOLE
     Indication: Tinea infection

REACTIONS (1)
  - Drug ineffective for unapproved indication [Unknown]
